FAERS Safety Report 6263261-2 (Version None)
Quarter: 2009Q3

REPORT INFORMATION
  Report Type: 
  Country: None (occurrence: None)
  Receive Date: 20090708
  Receipt Date: 20090708
  Transmission Date: 20100115
  Serious: No
  Sender: FDA-Public Use
  Company Number: None

PATIENT
  Sex: Female
  Weight: 68.0396 kg

DRUGS (2)
  1. ZICAM ZINCUM GLUCONIUM 2X MATRIXX INITIATIVES, INC. [Suspect]
     Indication: NASOPHARYNGITIS
     Dosage: ONE PUMP EVERY FOUR HOURS NASAL
     Route: 045
     Dates: start: 20000102, end: 20081030
  2. ZICAM ZINCUM GLUCONIUM 2X MATRIXX INITIATIVES, INC. [Suspect]
     Indication: PROPHYLAXIS
     Dosage: ONE PUMP EVERY FOUR HOURS NASAL
     Route: 045
     Dates: start: 20000102, end: 20081030

REACTIONS (2)
  - AGEUSIA [None]
  - ANOSMIA [None]
